FAERS Safety Report 19075541 (Version 1)
Quarter: 2021Q1

REPORT INFORMATION
  Report Type: Spontaneous
  Country: US (occurrence: US)
  Receive Date: 20210331
  Receipt Date: 20210331
  Transmission Date: 20210420
  Serious: Yes (Hospitalization)
  Sender: FDA-Public Use
  Company Number: US-DRREDDYS-USA/USA/21/0133409

PATIENT
  Age: 12 Year

DRUGS (4)
  1. RISPERIDONE. [Suspect]
     Active Substance: RISPERIDONE
     Indication: PSYCHIATRIC SYMPTOM
  2. CHLORPROMAZINE. [Suspect]
     Active Substance: CHLORPROMAZINE
     Indication: PSYCHIATRIC SYMPTOM
  3. HALOPERIDOL. [Suspect]
     Active Substance: HALOPERIDOL
     Indication: PSYCHIATRIC SYMPTOM
  4. ESCITALOPRAM [Concomitant]
     Active Substance: ESCITALOPRAM OXALATE
     Indication: PSYCHIATRIC SYMPTOM

REACTIONS (2)
  - Encephalitis autoimmune [Recovered/Resolved]
  - Condition aggravated [Recovered/Resolved]
